FAERS Safety Report 6308161-4 (Version None)
Quarter: 2009Q3

REPORT INFORMATION
  Report Type: 
  Country: None (occurrence: None)
  Receive Date: 20090813
  Receipt Date: 20090804
  Transmission Date: 20100115
  Serious: Yes (Other)
  Sender: FDA-Public Use
  Company Number: US-AMGEN-QUU358770

PATIENT
  Sex: Female

DRUGS (2)
  1. ENBREL [Suspect]
     Indication: RHEUMATOID ARTHRITIS
     Route: 058
     Dates: start: 20090716
  2. METHOTREXATE [Concomitant]
     Route: 048
     Dates: start: 20090301

REACTIONS (3)
  - SWELLING FACE [None]
  - SWOLLEN TONGUE [None]
  - TONGUE DISORDER [None]
